FAERS Safety Report 8862268 (Version 1)
Quarter: 2012Q4

REPORT INFORMATION
  Report Type: 
  Country: FR (occurrence: FR)
  Receive Date: 20121026
  Receipt Date: 20121026
  Transmission Date: 20130627
  Serious: Yes (Hospitalization)
  Sender: FDA-Public Use
  Company Number: FR-SANOFI-AVENTIS-2012SA075633

PATIENT
  Age: 38 Year
  Sex: Female

DRUGS (8)
  1. PLAQUENIL [Suspect]
     Indication: DRUG USE FOR UNKNOWN INDICATION
     Route: 048
     Dates: start: 1996, end: 20120912
  2. CORTANCYL [Concomitant]
  3. IMUREL [Concomitant]
  4. FOZITEC [Concomitant]
  5. LYRICA [Concomitant]
     Dosage: 25 MG MORNING, 50 MG EVENING
  6. ALPRAZOLAM [Concomitant]
  7. RUBOZINC [Concomitant]
     Dosage: Dose:2 unit(s)
  8. VITAMIN B12 [Concomitant]

REACTIONS (1)
  - Myositis [Unknown]
